FAERS Safety Report 20512033 (Version 10)
Quarter: 2022Q3

REPORT INFORMATION
  Report Type: Spontaneous
  Country: JP (occurrence: JP)
  Receive Date: 20220224
  Receipt Date: 20220721
  Transmission Date: 20221026
  Serious: Yes (Death, Life-Threatening, Other)
  Sender: FDA-Public Use
  Company Number: JP-GSKJP-JP2022JPN030757AA

PATIENT

DRUGS (18)
  1. SOTROVIMAB [Suspect]
     Active Substance: SOTROVIMAB
     Indication: COVID-19
     Dosage: 500 MG/50 ML/30 MIN
     Route: 041
     Dates: start: 20220127, end: 20220127
  2. ENTRESTO (SACUBITRIL VALSARTAN SODIUM HYDRATE) [Concomitant]
     Dosage: 400 MG
     Dates: end: 20220127
  3. CARVEDILOL [Concomitant]
     Active Substance: CARVEDILOL
     Dosage: 10 MG
     Dates: end: 20220127
  4. CORALAN (IVABRADINE HYDROCHLORIDE) [Concomitant]
     Dosage: 2.5 MG
     Dates: end: 20220127
  5. AZOSEMIDE [Concomitant]
     Active Substance: AZOSEMIDE
     Dosage: 30 MG
     Dates: end: 20220127
  6. ATORVASTATIN CALCIUM [Concomitant]
     Active Substance: ATORVASTATIN CALCIUM
     Dosage: UNK
     Dates: end: 20220127
  7. PIMURO [Concomitant]
     Dosage: 0.5 G
     Dates: end: 20220127
  8. LAGNOS NF JELLY FOR ORAL ADMINISTRATION DIVIDED PACK [Concomitant]
     Dosage: 2 SACHET
     Dates: end: 20220127
  9. BROTIZOLAM [Concomitant]
     Active Substance: BROTIZOLAM
     Dosage: 1 DF
     Dates: end: 20220127
  10. FEXOFENADINE HYDROCHLORIDE [Concomitant]
     Active Substance: FEXOFENADINE HYDROCHLORIDE
     Dosage: 120 MG
     Dates: end: 20220127
  11. VEKLURY [Concomitant]
     Active Substance: REMDESIVIR
     Indication: COVID-19
     Dosage: 200 MG
     Dates: start: 20220127, end: 20220202
  12. DEXAMETHASONE SODIUM PHOSPHATE [Concomitant]
     Active Substance: DEXAMETHASONE SODIUM PHOSPHATE
     Indication: COVID-19
     Dosage: 6.6 MG
     Dates: start: 20220127, end: 20220129
  13. DEXAMETHASONE SODIUM PHOSPHATE [Concomitant]
     Active Substance: DEXAMETHASONE SODIUM PHOSPHATE
     Dosage: 6 MG
     Dates: end: 20220202
  14. ACTEMRA [Concomitant]
     Active Substance: TOCILIZUMAB
     Indication: COVID-19
     Dosage: 400 MG
     Dates: start: 20220127
  15. SOLU-MEDROL [Concomitant]
     Active Substance: METHYLPREDNISOLONE SODIUM SUCCINATE
     Indication: COVID-19
     Dosage: 1000 MG
     Dates: start: 20220128, end: 20220130
  16. SOLU-MEDROL [Concomitant]
     Active Substance: METHYLPREDNISOLONE SODIUM SUCCINATE
     Indication: Anaphylactic reaction
  17. MIRCERA INJECTION [Concomitant]
     Dosage: UNK
     Dates: end: 20211210
  18. DEXAMETHASONE [Concomitant]
     Active Substance: DEXAMETHASONE
     Dosage: UNK
     Dates: start: 20220127

REACTIONS (24)
  - Acute respiratory failure [Fatal]
  - Ischaemic cardiomyopathy [Fatal]
  - COVID-19 [Fatal]
  - Pulmonary embolism [Fatal]
  - Delirium [Fatal]
  - Cardiac arrest [Fatal]
  - Depressed level of consciousness [Fatal]
  - Ventricular tachycardia [Fatal]
  - Dyspnoea [Fatal]
  - Hypoxia [Fatal]
  - Hypersensitivity [Fatal]
  - Mouth breathing [Fatal]
  - Blood pressure decreased [Fatal]
  - Anaphylactic reaction [Fatal]
  - Hypertension [Fatal]
  - Respiratory distress [Fatal]
  - Feeding disorder [Fatal]
  - Tachycardia [Fatal]
  - Wheezing [Fatal]
  - Stridor [Fatal]
  - Tachypnoea [Fatal]
  - Use of accessory respiratory muscles [Fatal]
  - Peripheral vascular disorder [Fatal]
  - Dysphonia [Fatal]

NARRATIVE: CASE EVENT DATE: 20220101
